FAERS Safety Report 23866612 (Version 4)
Quarter: 2024Q2

REPORT INFORMATION
  Report Type: Other
  Country: US (occurrence: None)
  Receive Date: 20240517
  Receipt Date: 20240610
  Transmission Date: 20240716
  Serious: No
  Sender: FDA-Public Use
  Company Number: US-ROCHE-3561106

PATIENT
  Age: 82 Year
  Sex: Female
  Weight: 38.1 kg

DRUGS (24)
  1. XOLAIR [Suspect]
     Active Substance: OMALIZUMAB
     Indication: Asthma
     Route: 058
     Dates: start: 201506
  2. XOLAIR [Suspect]
     Active Substance: OMALIZUMAB
  3. XOLAIR [Suspect]
     Active Substance: OMALIZUMAB
     Indication: Bronchopulmonary aspergillosis allergic
  4. XOLAIR [Suspect]
     Active Substance: OMALIZUMAB
  5. TYLENOL [Concomitant]
     Active Substance: ACETAMINOPHEN
  6. ALBUTEROL SULFATE [Concomitant]
     Active Substance: ALBUTEROL SULFATE
  7. ASPIRIN [Concomitant]
     Active Substance: ASPIRIN
  8. CALCIUM CARBONATE [Concomitant]
     Active Substance: CALCIUM CARBONATE
  9. DICLOFENAC SODIUM [Concomitant]
     Active Substance: DICLOFENAC\DICLOFENAC SODIUM
  10. EPINEPHRINE [Concomitant]
     Active Substance: EPINEPHRINE
  11. LASIX [Concomitant]
     Active Substance: FUROSEMIDE
  12. NEURONTIN [Concomitant]
     Active Substance: GABAPENTIN
  13. APRESOLINE HYDROCHLORIDE [Concomitant]
     Active Substance: HYDRALAZINE HYDROCHLORIDE
  14. LEVAQUIN [Concomitant]
     Active Substance: LEVOFLOXACIN
  15. MILK OF MAGNESIA [Concomitant]
     Active Substance: MAGNESIUM HYDROXIDE
  16. DULERA [Concomitant]
     Active Substance: FORMOTEROL FUMARATE DIHYDRATE\MOMETASONE FUROATE
  17. SINGULAIR [Concomitant]
     Active Substance: MONTELUKAST SODIUM
  18. PRILOSEC [Concomitant]
     Active Substance: OMEPRAZOLE MAGNESIUM
  19. GLYCOLAX [Concomitant]
     Active Substance: POLYETHYLENE GLYCOL 3350
  20. DEXAMETHASONE [Concomitant]
     Active Substance: DEXAMETHASONE
  21. ENTRESTO [Concomitant]
     Active Substance: SACUBITRIL\VALSARTAN
  22. SPIRIVA RESPIMAT [Concomitant]
     Active Substance: TIOTROPIUM BROMIDE
  23. ULTRAM [Concomitant]
     Active Substance: TRAMADOL HYDROCHLORIDE
  24. ORAPRED [Concomitant]
     Active Substance: PREDNISOLONE SODIUM PHOSPHATE

REACTIONS (2)
  - Off label use [Unknown]
  - No adverse event [Unknown]
